FAERS Safety Report 6652506-2 (Version None)
Quarter: 2010Q1

REPORT INFORMATION
  Report Type: 
  Country: None (occurrence: None)
  Receive Date: 20100324
  Receipt Date: 20100311
  Transmission Date: 20100710
  Serious: Yes (Death)
  Sender: FDA-Public Use
  Company Number: 1000012606

PATIENT
  Age: 36 Year
  Sex: Male

DRUGS (6)
  1. CITALOPRAM HYDROBROMIDE [Suspect]
     Indication: DEPRESSIVE SYMPTOM
     Dosage: 20 MG, ORAL
     Route: 048
     Dates: start: 20081203
  2. METHADON HCL TAB [Suspect]
     Dosage: (100 MG), ORAL
     Route: 048
     Dates: start: 20090424
  3. TEMESTA (TABLETS) [Suspect]
     Dosage: 2.5 MG, ORAL
     Route: 048
     Dates: start: 20080901
  4. IMOVANE (TABLETS) [Suspect]
     Dosage: 7.5 MG, ORAL
     Route: 048
     Dates: start: 20090326
  5. RISPERDAL [Suspect]
     Dosage: 3 MG (1.5 MG, 2 IN 1 D), ORAL
     Route: 048
     Dates: start: 20080901
  6. ZOLPIDEM [Concomitant]

REACTIONS (3)
  - DEEP VEIN THROMBOSIS [None]
  - OBSTRUCTION [None]
  - PULMONARY EMBOLISM [None]
